FAERS Safety Report 7978193-9 (Version None)
Quarter: 2011Q4

REPORT INFORMATION
  Report Type: 
  Country: None (occurrence: None)
  Receive Date: 20111209
  Receipt Date: 20111129
  Transmission Date: 20120403
  Serious: Yes (Hospitalization)
  Sender: FDA-Public Use
  Company Number: 2011SP055714

PATIENT
  Age: 28 Year
  Sex: Female

DRUGS (9)
  1. TEMODAL [Suspect]
     Indication: PRODUCT USED FOR UNKNOWN INDICATION
     Dosage: 270 MG;QD;PO; 180 MG;QD; 180 MG;QD, 135 MG;QD
     Route: 048
     Dates: start: 20110628, end: 20110702
  2. TEMODAL [Suspect]
     Indication: PRODUCT USED FOR UNKNOWN INDICATION
     Dosage: 270 MG;QD;PO; 180 MG;QD; 180 MG;QD, 135 MG;QD
     Route: 048
     Dates: start: 20111021, end: 20111025
  3. TEMODAL [Suspect]
     Indication: PRODUCT USED FOR UNKNOWN INDICATION
     Dosage: 270 MG;QD;PO; 180 MG;QD; 180 MG;QD, 135 MG;QD
     Route: 048
     Dates: start: 20110811
  4. TEMODAL [Suspect]
     Indication: PRODUCT USED FOR UNKNOWN INDICATION
     Dosage: 270 MG;QD;PO; 180 MG;QD; 180 MG;QD, 135 MG;QD
     Route: 048
     Dates: start: 20110915, end: 20110919
  5. PANTOPRAZOLE [Concomitant]
  6. URBANYL [Concomitant]
  7. KEPPRA [Concomitant]
  8. MEDROL [Concomitant]
  9. POTASSIUM CHLORIDE [Concomitant]

REACTIONS (3)
  - CONDITION AGGRAVATED [None]
  - ASTROCYTOMA [None]
  - FEBRILE BONE MARROW APLASIA [None]
